FAERS Safety Report 4359464-4 (Version None)
Quarter: 2004Q2

REPORT INFORMATION
  Report Type: 
  Country: None (occurrence: None)
  Receive Date: 20040514
  Receipt Date: 20040514
  Transmission Date: 20050107
  Serious: Yes (Hospitalization)
  Sender: FDA-Public Use
  Company Number: None

PATIENT
  Age: 83 Year
  Sex: Male

DRUGS (9)
  1. DICLOFENAC SODIUM [Suspect]
     Indication: OSTEOARTHRITIS
     Dosage: 75 MG Q12 H
     Dates: start: 20040128
  2. TERAZOSIN HCL [Concomitant]
  3. NAPROXEN [Concomitant]
  4. COLCHICINE [Concomitant]
  5. NIFEDIPINE [Concomitant]
  6. GEMFIBROZIL [Concomitant]
  7. EPOGEN [Concomitant]
  8. GEMFIBROZIL [Concomitant]
  9. AMITRIPTYLINE HCL [Concomitant]

REACTIONS (2)
  - GASTROINTESTINAL HAEMORRHAGE [None]
  - GASTROINTESTINAL ULCER [None]
